FAERS Safety Report 10644271 (Version 1)
Quarter: 2014Q4

REPORT INFORMATION
  Report Type: Spontaneous
  Country: DK (occurrence: GB)
  Receive Date: 20141210
  Receipt Date: 20141210
  Transmission Date: 20150529
  Serious: Yes (Other)
  Sender: FDA-Public Use
  Company Number: GB-FRI-1000072980

PATIENT
  Age: 15 Year
  Sex: Male
  Weight: 48.8 kg

DRUGS (3)
  1. CLARITHROMYCIN. [Concomitant]
     Active Substance: CLARITHROMYCIN
  2. CETIRIZINE [Concomitant]
     Active Substance: CETIRIZINE HYDROCHLORIDE
  3. CITALOPRAM [Suspect]
     Active Substance: CITALOPRAM HYDROBROMIDE
     Indication: DEPRESSION
     Dosage: 10 MG DAILY
     Route: 048
     Dates: start: 20141119, end: 20141125

REACTIONS (7)
  - Sleep terror [Unknown]
  - Drug administered to patient of inappropriate age [Unknown]
  - Disturbance in attention [Unknown]
  - Hallucinations, mixed [Unknown]
  - Condition aggravated [Unknown]
  - Depressed mood [Unknown]
  - Amnesia [Unknown]

NARRATIVE: CASE EVENT DATE: 20141119
